FAERS Safety Report 8516656-8 (Version None)
Quarter: 2012Q3

REPORT INFORMATION
  Report Type: 
  Country: None (occurrence: None)
  Receive Date: 20120718
  Receipt Date: 20120711
  Transmission Date: 20120928
  Serious: Yes (Other)
  Sender: FDA-Public Use
  Company Number: US-009507513-1207USA004811

PATIENT

DRUGS (1)
  1. PEG-INTRON [Suspect]
     Indication: HEPATITIS C
     Dosage: UNK
     Dates: start: 20111020

REACTIONS (4)
  - MENTAL DISORDER [None]
  - ANAEMIA [None]
  - DEPRESSED MOOD [None]
  - SUICIDAL IDEATION [None]
